FAERS Safety Report 18177001 (Version 1)
Quarter: 2020Q3

REPORT INFORMATION
  Report Type: Spontaneous
  Country: US (occurrence: US)
  Receive Date: 20200820
  Receipt Date: 20200820
  Transmission Date: 20201103
  Serious: No
  Sender: FDA-Public Use
  Company Number: US-PFIZER INC-2019280538

PATIENT
  Age: 65 Year
  Sex: Female

DRUGS (2)
  1. IBRANCE [Suspect]
     Active Substance: PALBOCICLIB
     Dosage: 100 MG, CYCLIC (EVERY DAY, X 21 DAYS Q [EVERY] 28 DAYS)
     Dates: start: 20180127
  2. IBRANCE [Suspect]
     Active Substance: PALBOCICLIB
     Indication: BREAST CANCER FEMALE
     Dosage: 125 MG, WEEKLY (1 DAY A WEEK)
     Route: 048

REACTIONS (3)
  - Product use issue [Unknown]
  - Blood count abnormal [Unknown]
  - Off label use [Unknown]
